FAERS Safety Report 6847812-2 (Version None)
Quarter: 2010Q3

REPORT INFORMATION
  Report Type: 
  Country: None (occurrence: None)
  Receive Date: 20100716
  Receipt Date: 20100706
  Transmission Date: 20110219
  Serious: Yes (Other)
  Sender: FDA-Public Use
  Company Number: US-PFIZER INC-2010076654

PATIENT
  Sex: Female

DRUGS (6)
  1. LYRICA [Suspect]
     Indication: FIBROMYALGIA
     Dosage: 75 MG, 2X/DAY
     Route: 048
     Dates: start: 20100608
  2. CYMBALTA [Concomitant]
     Dosage: UNK
  3. GEMFIBROZIL [Concomitant]
     Dosage: UNK
  4. HYDROXYZINE [Concomitant]
     Dosage: UNK
  5. METOPROLOL [Concomitant]
     Dosage: UNK
  6. FUROSEMIDE [Concomitant]
     Dosage: UNK

REACTIONS (4)
  - ANAL HAEMORRHAGE [None]
  - CONSTIPATION [None]
  - FATIGUE [None]
  - SLUGGISHNESS [None]
